FAERS Safety Report 18731244 (Version 4)
Quarter: 2024Q1

REPORT INFORMATION
  Report Type: Spontaneous
  Country: US (occurrence: US)
  Receive Date: 20210112
  Receipt Date: 20240108
  Transmission Date: 20240409
  Serious: No
  Sender: FDA-Public Use
  Company Number: US-PFIZER INC-2020387505

PATIENT
  Age: 72 Year
  Sex: Male

DRUGS (3)
  1. INLYTA [Suspect]
     Active Substance: AXITINIB
     Dosage: 5 MG, 2X/DAY (TAKE ON DAYS 1-28)
     Route: 048
  2. INLYTA [Suspect]
     Active Substance: AXITINIB
     Dosage: 10 MG, 2X/DAY ((TITRATED TO A MAXIMUM OF 10MG TWICE DAILY BASED ON RESPONSE OR TOXICITY)
  3. INLYTA [Suspect]
     Active Substance: AXITINIB
     Dosage: 5 MG, 2X/DAY (TAKE 1 TABLET (5 MG TOTAL) BY MOUTH 2 (TWO) TIMES DAILY FOR 21 DAYS.)
     Route: 048

REACTIONS (1)
  - Eating disorder [Unknown]
